FAERS Safety Report 8956244 (Version 1)
Quarter: 2012Q4

REPORT INFORMATION
  Report Type: 
  Country: US (occurrence: US)
  Receive Date: 20121210
  Receipt Date: 20121210
  Transmission Date: 20130627
  Serious: No
  Sender: FDA-Public Use
  Company Number: US-BAUSCH-2012BL000405

PATIENT
  Age: 61 Year
  Sex: Female

DRUGS (5)
  1. TOBRAMYCIN AND DEXAMETHASONE [Suspect]
     Indication: EYE INJURY
     Route: 047
     Dates: start: 20120116, end: 20120118
  2. TOBRAMYCIN + DEXAMETHASONE [Suspect]
     Indication: EYE SWELLING
  3. REFRESH LIQUIGEL [Concomitant]
     Indication: DRY EYE
     Route: 047
     Dates: start: 20120117
  4. PROAIR [Concomitant]
     Indication: ASTHMA
     Route: 049
     Dates: start: 2009
  5. SINGULAIR [Concomitant]
     Indication: ASTHMA
     Route: 048
     Dates: start: 2009

REACTIONS (2)
  - Dizziness [Not Recovered/Not Resolved]
  - Nausea [Recovering/Resolving]
